FAERS Safety Report 26043575 (Version 2)
Quarter: 2025Q4

REPORT INFORMATION
  Report Type: Spontaneous
  Country: PH (occurrence: PH)
  Receive Date: 20251113
  Receipt Date: 20251204
  Transmission Date: 20260117
  Serious: Yes (Death)
  Sender: BEIGENE
  Company Number: PH-BEIGENE-BGN-2025-020017

PATIENT

DRUGS (2)
  1. BRUKINSA [Suspect]
     Active Substance: ZANUBRUTINIB
     Indication: Product used for unknown indication
     Dosage: UNK
  2. BRUKINSA [Suspect]
     Active Substance: ZANUBRUTINIB
     Dosage: UNK

REACTIONS (1)
  - Infection [Fatal]
